FAERS Safety Report 4940075-4 (Version None)
Quarter: 2006Q1

REPORT INFORMATION
  Report Type: 
  Country: None (occurrence: None)
  Receive Date: 20060310
  Receipt Date: 20050919
  Transmission Date: 20060701
  Serious: Yes (Hospitalization)
  Sender: FDA-Public Use
  Company Number: PHEH2005US10455

PATIENT
  Age: 39 Year
  Sex: Female

DRUGS (2)
  1. GLEEVEC [Suspect]
     Indication: CHRONIC MYELOID LEUKAEMIA
     Dosage: 400 MG, QD
     Route: 048
     Dates: start: 20050804, end: 20050914
  2. ANTIHYPERTENSIVE [Concomitant]
     Indication: HYPERTENSION

REACTIONS (13)
  - BLOOD TEST ABNORMAL [None]
  - CARDIAC FAILURE CONGESTIVE [None]
  - COMPUTERISED TOMOGRAM ABNORMAL [None]
  - DYSPNOEA EXERTIONAL [None]
  - ELECTROCARDIOGRAM ABNORMAL [None]
  - HEPATIC STEATOSIS [None]
  - MYOCARDIAL INFARCTION [None]
  - MYOCARDITIS [None]
  - PLEURITIC PAIN [None]
  - PNEUMONIA [None]
  - PYREXIA [None]
  - SINUS TACHYCARDIA [None]
  - TROPONIN INCREASED [None]
